FAERS Safety Report 8335573-X (Version None)
Quarter: 2012Q2

REPORT INFORMATION
  Report Type: 
  Country: None (occurrence: None)
  Receive Date: 20120504
  Receipt Date: 20120423
  Transmission Date: 20120825
  Serious: Yes (Other)
  Sender: FDA-Public Use
  Company Number: US-BRISTOL-MYERS SQUIBB COMPANY-16544454

PATIENT
  Age: 9 Year
  Sex: Male

DRUGS (1)
  1. ABILIFY [Suspect]
     Indication: AUTISM

REACTIONS (1)
  - HEPATITIS B [None]
